FAERS Safety Report 6612352-2 (Version None)
Quarter: 2010Q1

REPORT INFORMATION
  Report Type: 
  Country: None (occurrence: None)
  Receive Date: 20100302
  Receipt Date: 20100302
  Transmission Date: 20100710
  Serious: Yes (Other)
  Sender: FDA-Public Use
  Company Number: None

PATIENT
  Sex: Male
  Weight: 77.1115 kg

DRUGS (5)
  1. FLUOXETINE [Suspect]
     Indication: ANXIETY
     Dosage: 20MG DAILY
     Dates: start: 20060201, end: 20070910
  2. FLUOXETINE [Suspect]
     Indication: DEPRESSION
     Dosage: 20MG DAILY
     Dates: start: 20060201, end: 20070910
  3. FLUOXETINE [Suspect]
     Indication: ANXIETY
     Dosage: 20MG DAILY
     Dates: start: 20080913, end: 20091015
  4. FLUOXETINE [Suspect]
     Indication: DEPRESSION
     Dosage: 20MG DAILY
     Dates: start: 20080913, end: 20091015
  5. PROZAC [Concomitant]

REACTIONS (5)
  - ANGER [None]
  - EJACULATION DELAYED [None]
  - GENITAL DISCOMFORT [None]
  - LIBIDO DECREASED [None]
  - MANIA [None]
